FAERS Safety Report 7010827-8 (Version None)
Quarter: 2010Q3

REPORT INFORMATION
  Report Type: 
  Country: None (occurrence: None)
  Receive Date: 20100923
  Receipt Date: 20100914
  Transmission Date: 20110219
  Serious: Yes (Hospitalization, Other)
  Sender: FDA-Public Use
  Company Number: US-ABBOTT-09P-163-0604907-00

PATIENT
  Sex: Male
  Weight: 61.29 kg

DRUGS (9)
  1. HUMIRA [Suspect]
     Indication: COLITIS ULCERATIVE
     Dates: start: 20090814
  2. HUMIRA [Suspect]
     Dates: start: 20100310
  3. ASPIRIN [Suspect]
     Indication: MITRAL VALVE REPLACEMENT
     Route: 048
     Dates: start: 20100201, end: 20100301
  4. ASACOL [Concomitant]
     Indication: CROHN'S DISEASE
  5. ZOCOR [Concomitant]
     Indication: BLOOD CHOLESTEROL INCREASED
  6. INFLUENZA VACCINE [Concomitant]
     Indication: ANTIVIRAL PROPHYLAXIS
     Dates: start: 20090101
  7. PNEUMOVAX 23 [Concomitant]
     Indication: PNEUMONIA
     Dates: start: 20090101
  8. PNEUMOVAX 23 [Concomitant]
     Indication: PROPHYLAXIS
  9. PREDNISONE TAB [Concomitant]
     Indication: COLITIS ULCERATIVE
     Route: 048

REACTIONS (12)
  - ATRIAL FIBRILLATION [None]
  - CELLULITIS [None]
  - COLITIS ULCERATIVE [None]
  - DIARRHOEA [None]
  - HEART RATE INCREASED [None]
  - INFLUENZA [None]
  - LEFT ATRIAL HYPERTROPHY [None]
  - LIQUID PRODUCT PHYSICAL ISSUE [None]
  - MITRAL VALVE INCOMPETENCE [None]
  - MITRAL VALVE PROLAPSE [None]
  - NASAL POLYPS [None]
  - UPPER AIRWAY OBSTRUCTION [None]
